FAERS Safety Report 9980914 (Version 1)
Quarter: 2014Q1

REPORT INFORMATION
  Report Type: Spontaneous
  Country: US (occurrence: US)
  Receive Date: 20140307
  Receipt Date: 20140307
  Transmission Date: 20141002
  Serious: No
  Sender: FDA-Public Use
  Company Number: US-GLAXOSMITHKLINE-A1023993A

PATIENT
  Age: 44 Year
  Sex: Male

DRUGS (2)
  1. REQUIP [Suspect]
  2. UNKNOWN [Concomitant]

REACTIONS (1)
  - Pathological gambling [Recovered/Resolved]
